FAERS Safety Report 26153864 (Version 1)
Quarter: 2025Q4

REPORT INFORMATION
  Report Type: Spontaneous
  Country: JP (occurrence: JP)
  Receive Date: 20251214
  Receipt Date: 20251214
  Transmission Date: 20260118
  Serious: Yes (Death, Hospitalization, Other)
  Sender: STRIDES
  Company Number: None

PATIENT
  Age: 65 Year
  Sex: Male

DRUGS (19)
  1. MEROPENEM [Suspect]
     Active Substance: MEROPENEM
     Indication: Stenotrophomonas infection
     Dosage: UNK
     Route: 065
  2. MINOCYCLINE [Suspect]
     Active Substance: MINOCYCLINE HYDROCHLORIDE
     Indication: Stenotrophomonas infection
     Dosage: UNK
     Route: 065
  3. PREDNISOLONE [Concomitant]
     Active Substance: PREDNISOLONE
     Indication: Sarcoidosis
     Dosage: 5 MILLIGRAM, QD LONG-TERM; APPROXIMATELY 10 YEARS
     Route: 065
  4. PREDNISOLONE [Concomitant]
     Active Substance: PREDNISOLONE
     Dosage: UNK TAPERING OVER 1.5 MONTHS
     Route: 065
  5. METHYLPREDNISOLONE [Concomitant]
     Active Substance: METHYLPREDNISOLONE
     Indication: Pneumonitis
     Dosage: 1000 MILLIGRAM, QD 3 DAYS; PULSE THERAPY
     Route: 065
  6. BEVACIZUMAB [Concomitant]
     Active Substance: BEVACIZUMAB
     Indication: Colorectal cancer stage IV
     Dosage: 5 MILLIGRAM/KILOGRAM REPEATED BIWEEKLY, 21 CYCLES
     Route: 065
  7. FLUOROURACIL [Concomitant]
     Active Substance: FLUOROURACIL
     Indication: Colorectal cancer stage IV
     Dosage: 400 MILLIGRAM/SQ. METER REPEATED BIWEEKLY, 21 CYCLES
     Route: 040
  8. FLUOROURACIL [Concomitant]
     Active Substance: FLUOROURACIL
     Dosage: 2400 MILLIGRAM/SQ. METER REPEATED BIWEEKLY, 21 CYCLES
     Route: 042
  9. LEUCOVORIN [Concomitant]
     Active Substance: LEUCOVORIN\LEUCOVORIN CALCIUM
     Indication: Colorectal cancer stage IV
     Dosage: ON DAY 1, REPEATED BIWEEKLY, 21 CYCLES
     Route: 065
  10. OXALIPLATIN [Concomitant]
     Active Substance: OXALIPLATIN
     Indication: Colorectal cancer stage IV
     Dosage: ON DAY 1, REPEATED BIWEEKLY, 21 CYCLES
     Route: 065
  11. OXALIPLATIN [Concomitant]
     Active Substance: OXALIPLATIN
     Dosage: UNK REDUCED DOSE
     Route: 065
  12. ENCORAFENIB [Concomitant]
     Active Substance: ENCORAFENIB
     Indication: Colorectal cancer stage IV
     Dosage: 300 MILLIGRAM, QD
     Route: 065
  13. ENCORAFENIB [Concomitant]
     Active Substance: ENCORAFENIB
     Indication: Metastases to lung
  14. ENCORAFENIB [Concomitant]
     Active Substance: ENCORAFENIB
     Indication: Metastases to liver
  15. ENCORAFENIB [Concomitant]
     Active Substance: ENCORAFENIB
     Indication: Metastases to lymph nodes
  16. CETUXIMAB [Concomitant]
     Active Substance: CETUXIMAB
     Indication: Colorectal cancer stage IV
     Dosage: 400 MILLIGRAM/SQ. METER 5 CYCLES INITIAL DOSE
     Route: 065
  17. CETUXIMAB [Concomitant]
     Active Substance: CETUXIMAB
     Indication: Metastases to liver
     Dosage: 250 MILLIGRAM/SQ. METER, ONCE A WEEK 5 CYCLES
     Route: 065
  18. CETUXIMAB [Concomitant]
     Active Substance: CETUXIMAB
     Indication: Metastases to lung
  19. CETUXIMAB [Concomitant]
     Active Substance: CETUXIMAB
     Indication: Metastases to lymph nodes

REACTIONS (5)
  - Abdominal abscess [Fatal]
  - Acute respiratory distress syndrome [Fatal]
  - Pulmonary oedema [Fatal]
  - Respiratory failure [Fatal]
  - Drug ineffective [Fatal]
